FAERS Safety Report 6296127-2 (Version None)
Quarter: 2009Q3

REPORT INFORMATION
  Report Type: 
  Country: None (occurrence: None)
  Receive Date: 20090731
  Receipt Date: 20090722
  Transmission Date: 20100115
  Serious: Yes (Life-Threatening)
  Sender: FDA-Public Use
  Company Number: 2009EU002910

PATIENT
  Sex: Female

DRUGS (4)
  1. PROGRAF [Suspect]
     Dosage: 8 MG, D, TRANSPLACENTAL
     Route: 064
     Dates: start: 20020227
  2. BISOPROLOL FUMARATE [Suspect]
     Dosage: D, TRANSPLACENTAL
     Route: 064
     Dates: start: 20020227
  3. ASPEGIC 1000 [Concomitant]
  4. LEXOMIL (BROMAZEPAM) [Concomitant]

REACTIONS (4)
  - CAESAREAN SECTION [None]
  - FOETAL GROWTH RETARDATION [None]
  - MATERNAL DRUGS AFFECTING FOETUS [None]
  - PREMATURE BABY [None]
